FAERS Safety Report 17186750 (Version 1)
Quarter: 2019Q4

REPORT INFORMATION
  Report Type: Spontaneous
  Country: US (occurrence: US)
  Receive Date: 20191220
  Receipt Date: 20191220
  Transmission Date: 20200122
  Serious: No
  Sender: FDA-Public Use
  Company Number: US-ASTRAZENECA-2019SF68393

PATIENT
  Age: 60 Year
  Sex: Female

DRUGS (3)
  1. INSULIN [Concomitant]
     Active Substance: INSULIN NOS
  2. FARXIGA [Suspect]
     Active Substance: DAPAGLIFLOZIN PROPANEDIOL
     Indication: INSULIN-REQUIRING TYPE 2 DIABETES MELLITUS
     Dosage: 5.0MG UNKNOWN
     Route: 048
     Dates: start: 201905, end: 201911
  3. DIFLUCAN [Concomitant]
     Active Substance: FLUCONAZOLE
     Indication: ACTINOMYCOSIS

REACTIONS (1)
  - Fungal infection [Unknown]

NARRATIVE: CASE EVENT DATE: 2019
